FAERS Safety Report 15392633 (Version 1)
Quarter: 2018Q3

REPORT INFORMATION
  Report Type: Spontaneous
  Country: US (occurrence: US)
  Receive Date: 20180917
  Receipt Date: 20180917
  Transmission Date: 20181010
  Serious: Yes (Other)
  Sender: FDA-Public Use
  Company Number: US-BRAINTREE LABORATORIES-180469

PATIENT
  Age: 77 Year
  Sex: Female
  Weight: 56.7 kg

DRUGS (1)
  1. SUPREP BOWEL PREP [Suspect]
     Active Substance: MAGNESIUM SULFATE\POTASSIUM SULFATE\SODIUM SULFATE
     Indication: COLONOSCOPY
     Dosage: 1 X 6 OZ. BOTTLE
     Route: 048
     Dates: start: 20180911, end: 20180911

REACTIONS (7)
  - Vomiting [None]
  - Nausea [None]
  - Oropharyngeal pain [None]
  - Skin swelling [None]
  - Loss of consciousness [None]
  - Laceration [None]
  - Contusion [None]

NARRATIVE: CASE EVENT DATE: 20180911
